FAERS Safety Report 8904588 (Version 1)
Quarter: 2012Q4

REPORT INFORMATION
  Report Type: 
  Country: US (occurrence: US)
  Receive Date: 20121113
  Receipt Date: 20121113
  Transmission Date: 20130627
  Serious: No
  Sender: FDA-Public Use
  Company Number: US-PFIZER INC-2012283321

PATIENT
  Age: 77 Year
  Sex: Female
  Weight: 63.49 kg

DRUGS (6)
  1. LYRICA [Suspect]
     Indication: FIBROMYALGIA
     Dosage: 100 mg, 1x/day
     Route: 048
  2. ZEBETA [Concomitant]
     Indication: BLOOD PRESSURE HIGH
     Dosage: UNK
  3. NORVASC [Concomitant]
     Indication: BLOOD PRESSURE HIGH
     Dosage: UNK
  4. HYDROCHLOROTHIAZIDE [Concomitant]
     Indication: BLOOD PRESSURE HIGH
     Dosage: UNK
  5. LIPITOR [Concomitant]
     Dosage: UNK
  6. RELAFEN [Concomitant]
     Dosage: UNK

REACTIONS (3)
  - Insomnia [Unknown]
  - Palpitations [Unknown]
  - Feeling jittery [Unknown]
